FAERS Safety Report 12570829 (Version 1)
Quarter: 2016Q3

REPORT INFORMATION
  Report Type: Report from Study
  Country: US (occurrence: US)
  Receive Date: 20160719
  Receipt Date: 20160719
  Transmission Date: 20161109
  Serious: No
  Sender: FDA-Public Use
  Company Number: US-AMGEN-USASL2016072611

PATIENT
  Age: 49 Year
  Sex: Male
  Weight: 82.99 kg

DRUGS (3)
  1. SALT [Concomitant]
     Active Substance: SODIUM CHLORIDE
     Dosage: UNK, QD
  2. CORLANOR [Suspect]
     Active Substance: IVABRADINE HYDROCHLORIDE
     Indication: SINUS TACHYCARDIA
     Dosage: 2.5 MG, BID
     Route: 048
  3. MIDODRINE HCL [Concomitant]
     Active Substance: MIDODRINE HYDROCHLORIDE
     Dosage: 1 DF, BID

REACTIONS (1)
  - Off label use [Unknown]
